FAERS Safety Report 23943440 (Version 3)
Quarter: 2024Q3

REPORT INFORMATION
  Report Type: Spontaneous
  Country: GB (occurrence: GB)
  Receive Date: 20240605
  Receipt Date: 20240711
  Transmission Date: 20241016
  Serious: Yes (Hospitalization, Other)
  Sender: ABBVIE
  Company Number: GB-ABBVIE-5783823

PATIENT
  Age: 61 Year
  Sex: Female

DRUGS (5)
  1. RISANKIZUMAB [Suspect]
     Active Substance: RISANKIZUMAB
     Indication: Crohn^s disease
     Dosage: FREQUENCY TEXT: SINGLE DOSE, DOSE FORM CONCENTRATE FOR SUSPENSION FOR INFUSION
     Route: 042
     Dates: start: 20240510
  2. LANSOPRAZOLE [Concomitant]
     Active Substance: LANSOPRAZOLE
     Indication: Gastrooesophageal reflux disease
     Route: 048
  3. AMLODIPINE [Concomitant]
     Active Substance: AMLODIPINE BESYLATE
     Indication: Hypertension
     Route: 048
  4. MIRTAZAPINE [Concomitant]
     Active Substance: MIRTAZAPINE
     Indication: Product used for unknown indication
     Route: 048
  5. PREDNISOLONE [Suspect]
     Active Substance: PREDNISOLONE
     Indication: Crohn^s disease
     Route: 048

REACTIONS (2)
  - Large intestine perforation [Recovered/Resolved with Sequelae]
  - Abdominal pain [Unknown]

NARRATIVE: CASE EVENT DATE: 20240101
